FAERS Safety Report 6349347-2 (Version None)
Quarter: 2009Q3

REPORT INFORMATION
  Report Type: 
  Country: None (occurrence: None)
  Receive Date: 20090911
  Receipt Date: 20090901
  Transmission Date: 20100115
  Serious: Yes (Other)
  Sender: FDA-Public Use
  Company Number: FR-ELI_LILLY_AND_COMPANY-FR200903006334

PATIENT
  Age: 28 Year
  Sex: Female

DRUGS (6)
  1. BYETTA [Suspect]
     Indication: DIABETES MELLITUS
     Dosage: 10 UG, 2/D
     Route: 058
     Dates: start: 20080828, end: 20090101
  2. BYETTA [Suspect]
     Dosage: 10 UG, 2/D
     Dates: start: 20090101
  3. SULFAMIDE [Concomitant]
     Indication: DIABETES MELLITUS
     Dosage: UNK, UNKNOWN
     Route: 065
  4. STAGID [Concomitant]
     Indication: DIABETES MELLITUS
     Dosage: 2250 MG, UNKNOWN
     Route: 048
     Dates: start: 20080601
  5. ACTOS [Concomitant]
     Indication: DIABETES MELLITUS
     Dosage: 30 MG, UNKNOWN
     Route: 048
     Dates: start: 20081201
  6. DIAMICRON [Concomitant]
     Indication: DIABETES MELLITUS
     Dosage: 60 MG, UNKNOWN
     Route: 048
     Dates: start: 20080601

REACTIONS (2)
  - ABORTION SPONTANEOUS [None]
  - DRUG EXPOSURE DURING PREGNANCY [None]
